FAERS Safety Report 21637017 (Version 2)
Quarter: 2022Q4

REPORT INFORMATION
  Report Type: Report from Study
  Country: None (occurrence: US)
  Receive Date: 20221124
  Receipt Date: 20221213
  Transmission Date: 20230113
  Serious: Yes (Other)
  Sender: FDA-Public Use
  Company Number: US-AKCEA THERAPEUTICS, INC.-2022IS001085

PATIENT
  Age: 77 Year
  Sex: Male

DRUGS (3)
  1. TEGSEDI [Suspect]
     Active Substance: INOTERSEN SODIUM
     Indication: Hereditary neuropathic amyloidosis
     Route: 058
     Dates: start: 20190730
  2. DEVICE [Suspect]
     Active Substance: DEVICE
  3. TEGSEDI [Suspect]
     Active Substance: INOTERSEN SODIUM
     Route: 058

REACTIONS (14)
  - Urine protein/creatinine ratio increased [Unknown]
  - Nitrite urine present [Unknown]
  - Platelet count increased [Unknown]
  - Urinary occult blood positive [Unknown]
  - White blood cells urine positive [Unknown]
  - Fungal test positive [Unknown]
  - Bacterial test positive [Unknown]
  - Urine ketone body present [Unknown]
  - Crystal urine present [Unknown]
  - Urine abnormality [Unknown]
  - Urine leukocyte esterase positive [Unknown]
  - Urinary casts present [Unknown]
  - Protein urine present [Unknown]
  - Red blood cells urine positive [Unknown]

NARRATIVE: CASE EVENT DATE: 20220117
